FAERS Safety Report 6680013-X (Version None)
Quarter: 2010Q2

REPORT INFORMATION
  Report Type: 
  Country: None (occurrence: None)
  Receive Date: 20100413
  Receipt Date: 20100401
  Transmission Date: 20101027
  Serious: Yes (Other)
  Sender: FDA-Public Use
  Company Number: US-PFIZER INC-2010014524

PATIENT
  Sex: Male
  Weight: 126.98 kg

DRUGS (7)
  1. GLUCOTROL XL [Suspect]
     Indication: DIABETES MELLITUS
     Dosage: 10 MG, 2X/DAY
     Dates: start: 20091121
  2. GLIPIZIDE [Suspect]
     Dosage: UNK
     Dates: start: 20050101
  3. LIPITOR [Concomitant]
     Dosage: UNK
  4. ACIPHEX [Concomitant]
     Dosage: UNK
  5. AMOXICILLIN [Concomitant]
     Dosage: UNK
  6. TIMOLOL [Concomitant]
     Indication: GLAUCOMA
     Dosage: UNK
  7. TRAVATAN [Concomitant]
     Indication: GLAUCOMA
     Dosage: UNK

REACTIONS (3)
  - BLOOD GLUCOSE INCREASED [None]
  - DRUG INEFFECTIVE [None]
  - GLYCOSYLATED HAEMOGLOBIN INCREASED [None]
